FAERS Safety Report 8593476-X (Version None)
Quarter: 2012Q3

REPORT INFORMATION
  Report Type: 
  Country: None (occurrence: None)
  Receive Date: 20120814
  Receipt Date: 20120811
  Transmission Date: 20120928
  Serious: No
  Sender: FDA-Public Use
  Company Number: US-TEVA-353585USA

PATIENT
  Sex: Female
  Weight: 143.46 kg

DRUGS (3)
  1. ORAL CONTRACEPTION [Concomitant]
     Indication: CONTRACEPTION
  2. PLAN B ONE-STEP [Suspect]
     Indication: POST COITAL CONTRACEPTION
     Dosage: 1.5 MILLIGRAM DAILY;
     Route: 048
     Dates: start: 20120807, end: 20120807
  3. LEXAPRO [Concomitant]
     Indication: DEPRESSION

REACTIONS (1)
  - MENSTRUATION IRREGULAR [None]
